FAERS Safety Report 17520990 (Version 2)
Quarter: 2020Q1

REPORT INFORMATION
  Report Type: Report from Study
  Country: ZW (occurrence: ZW)
  Receive Date: 20200310
  Receipt Date: 20200320
  Transmission Date: 20200409
  Serious: Yes (Other)
  Sender: FDA-Public Use
  Company Number: ZW-GILEAD-2020-0453750

PATIENT
  Age: 29 Year
  Sex: Female
  Weight: 83.1 kg

DRUGS (3)
  1. BLINDED EMTRICITABINE;TENOFOVIR DISOPROXIL FUMARATE [Suspect]
     Active Substance: EMTRICITABINE\TENOFOVIR DISOPROXIL FUMARATE
     Indication: PROPHYLAXIS AGAINST HIV INFECTION
     Dosage: 200/300MG, QD
     Route: 048
     Dates: start: 20190613, end: 20200224
  2. BLINDED CABOTEGRAVIR [Suspect]
     Active Substance: CABOTEGRAVIR
     Indication: PROPHYLAXIS AGAINST HIV INFECTION
     Dosage: 200/300MG, QD
     Route: 048
     Dates: start: 20190613, end: 20200224
  3. BLINDED PLACEBO [Suspect]
     Active Substance: INVESTIGATIONAL PRODUCT
     Indication: PROPHYLAXIS AGAINST HIV INFECTION
     Dosage: 200/300MG, QD
     Route: 048
     Dates: start: 20190613, end: 20200224

REACTIONS (1)
  - Hepatitis viral [Recovering/Resolving]

NARRATIVE: CASE EVENT DATE: 20200225
